FAERS Safety Report 18243379 (Version 11)
Quarter: 2020Q4

REPORT INFORMATION
  Report Type: Report from Study
  Country: FR (occurrence: FR)
  Receive Date: 20200908
  Receipt Date: 20201221
  Transmission Date: 20210113
  Serious: Yes (Death, Life-Threatening, Hospitalization, Other)
  Sender: FDA-Public Use
  Company Number: FR-MYLANLABS-2020M1077635

PATIENT
  Age: 74 Year
  Sex: Male

DRUGS (83)
  1. MACROGOL [Suspect]
     Active Substance: POLYETHYLENE GLYCOLS
     Indication: CONSTIPATION
     Dosage: 2 SACHET, BID
     Route: 048
     Dates: start: 20200713, end: 20200715
  2. ISOSORBIDE DINITRATE. [Suspect]
     Active Substance: ISOSORBIDE DINITRATE
     Indication: PRODUCT USED FOR UNKNOWN INDICATION
     Dosage: UNK
     Route: 065
     Dates: start: 20200714, end: 20200720
  3. HYDROXYCARBAMIDE [Concomitant]
     Active Substance: HYDROXYUREA
     Dosage: UNK
  4. AMIODARONE [Concomitant]
     Active Substance: AMIODARONE
     Dosage: UNK
  5. SERTRALINE [Suspect]
     Active Substance: SERTRALINE HYDROCHLORIDE
     Indication: DEPRESSION
     Dosage: 50 MILLIGRAM, QD (50 MG, SINGLE)
     Route: 048
     Dates: start: 20200726, end: 20200810
  6. HYDROXYZINE [Suspect]
     Active Substance: HYDROXYZINE HYDROCHLORIDE
     Indication: PRODUCT USED FOR UNKNOWN INDICATION
     Dosage: UNK
     Route: 065
  7. IMODIUM [Suspect]
     Active Substance: LOPERAMIDE HYDROCHLORIDE
     Dosage: UNK
     Route: 065
  8. TIORFAN [Suspect]
     Active Substance: RACECADOTRIL
     Indication: PRODUCT USED FOR UNKNOWN INDICATION
     Dosage: UNK
     Route: 065
     Dates: start: 20200727, end: 20200804
  9. GLUCONATE DE POTASSIUM [Suspect]
     Active Substance: POTASSIUM GLUCONATE
     Indication: PRODUCT USED FOR UNKNOWN INDICATION
     Dosage: UNK
     Route: 065
  10. PARACETAMOL [Suspect]
     Active Substance: ACETAMINOPHEN
     Dosage: 1 GRAM
     Route: 042
     Dates: start: 20200719, end: 20200730
  11. NORADRENALINE                      /00127501/ [Suspect]
     Active Substance: NOREPINEPHRINE
     Dosage: 8 MILLIGRAM
     Route: 042
     Dates: start: 20200709, end: 20200712
  12. ATORVASTATINE                      /01326101/ [Concomitant]
     Active Substance: ATORVASTATIN
     Indication: PRODUCT USED FOR UNKNOWN INDICATION
     Dosage: UNK
     Route: 065
  13. AMIODARONE [Concomitant]
     Active Substance: AMIODARONE
     Indication: ATRIAL FIBRILLATION
     Dosage: 907.2 MG, CO
     Route: 042
     Dates: start: 20200725, end: 20200727
  14. LANSOPRAZOLE. [Suspect]
     Active Substance: LANSOPRAZOLE
     Dosage: 78 MILLIGRAM
     Route: 048
  15. LOVENOX [Suspect]
     Active Substance: ENOXAPARIN SODIUM
     Indication: PHLEBITIS
     Dosage: 6000 IU, SINGLE
     Route: 058
     Dates: start: 20200708, end: 20200807
  16. OXAZEPAM. [Suspect]
     Active Substance: OXAZEPAM
     Indication: ANXIOLYTIC THERAPY
     Dosage: 20 MILLIGRAM, QD
     Route: 048
  17. MIDAZOLAM. [Suspect]
     Active Substance: MIDAZOLAM
     Indication: SEDATION
     Dosage: 5 MG/HR, CO
     Route: 042
     Dates: start: 20200709, end: 20200713
  18. MIDAZOLAM. [Suspect]
     Active Substance: MIDAZOLAM
     Dosage: 5 MILLIGRAM
     Route: 042
     Dates: start: 20200709, end: 20200713
  19. ISUPREL [Suspect]
     Active Substance: ISOPROTERENOL HYDROCHLORIDE
     Indication: PRODUCT USED FOR UNKNOWN INDICATION
     Dosage: UNK
     Route: 065
     Dates: start: 20200711, end: 20200713
  20. DUPHALAC [Suspect]
     Active Substance: LACTULOSE
     Dosage: 40 MILLIGRAM
     Route: 048
  21. NIMBEX [Suspect]
     Active Substance: CISATRACURIUM BESYLATE
     Indication: ENDOTRACHEAL INTUBATION
     Dosage: 20 MG, SINGLE
     Route: 042
     Dates: start: 20200715, end: 20200715
  22. DIAZEPAM. [Suspect]
     Active Substance: DIAZEPAM
     Indication: PRODUCT USED FOR UNKNOWN INDICATION
     Dosage: UNK
     Route: 065
  23. AMIODARONE [Concomitant]
     Active Substance: AMIODARONE
     Dosage: 907.2 MILLIGRAM, QD
     Route: 042
     Dates: start: 20200725, end: 20200727
  24. KARDEGIC [Concomitant]
     Active Substance: ASPIRIN DL-LYSINE
     Indication: PRODUCT USED FOR UNKNOWN INDICATION
     Dosage: UNK
     Route: 065
  25. PIPERACILLIN/TAZOBACTAM [Suspect]
     Active Substance: PIPERACILLIN SODIUM\TAZOBACTAM SODIUM
     Dosage: 12 GRAM
     Route: 042
  26. METHYLPREDNISOLONE. [Suspect]
     Active Substance: METHYLPREDNISOLONE
     Dosage: 1800 MILLIGRAM
     Route: 042
  27. LANSOPRAZOLE. [Suspect]
     Active Substance: LANSOPRAZOLE
     Dosage: 3 MILLIGRAM, QD
     Route: 048
     Dates: start: 20200710, end: 20200805
  28. ROVAMYCINE                         /00074401/ [Suspect]
     Active Substance: SPIRAMYCIN
     Indication: PNEUMONIA
     Dosage: 3 MILLION IU, TID
     Route: 042
     Dates: start: 20200708, end: 20200715
  29. HUMALOG [Suspect]
     Active Substance: INSULIN LISPRO
     Dosage: UNK
  30. LORAZEPAM. [Suspect]
     Active Substance: LORAZEPAM
     Dosage: 10 MILLIGRAM
     Route: 048
  31. SUFENTANIL [Suspect]
     Active Substance: SUFENTANIL
     Indication: GAIT DISTURBANCE
     Dosage: 0.33 UG/MIN, CO
     Route: 042
     Dates: start: 20200709, end: 20200717
  32. SUFENTANIL [Suspect]
     Active Substance: SUFENTANIL
     Dosage: 33 MICROGRAM
     Route: 042
     Dates: start: 20200709, end: 20200717
  33. PHOSPHONEUROS [Suspect]
     Active Substance: CALCIUM PHOSPHATE, DIBASIC, ANHYDROUS\MAGNESIUM GLYCEROPHOSPHATE\PHOSPHORIC ACID\SODIUM PHOSPHATE, DIBASIC
     Dosage: UNK
  34. DIAMOX                             /00016901/ [Suspect]
     Active Substance: ACETAZOLAMIDE
     Indication: PRODUCT USED FOR UNKNOWN INDICATION
     Dosage: UNK
     Route: 065
  35. DUPHALAC [Suspect]
     Active Substance: LACTULOSE
     Dosage: 80 MILLIGRAM
     Route: 048
  36. NORADRENALINE                      /00127501/ [Suspect]
     Active Substance: NOREPINEPHRINE
     Indication: SEDATION
     Dosage: 0.8 MG/HR, CO
     Route: 042
     Dates: start: 20200709, end: 20200712
  37. NIMBEX [Suspect]
     Active Substance: CISATRACURIUM BESYLATE
     Indication: NEUROMUSCULAR BLOCKING THERAPY
     Dosage: UNK
  38. IPRATROPIUM [Suspect]
     Active Substance: IPRATROPIUM
     Indication: BRONCHIAL DISORDER
     Dosage: 1.5 MILLIGRAM, QD (0.5 MG, TID)
     Route: 055
     Dates: start: 20200730, end: 20200803
  39. METHYLPREDNISOLONE. [Suspect]
     Active Substance: METHYLPREDNISOLONE
     Indication: ACUTE RESPIRATORY DISTRESS SYNDROME
     Dosage: 120 MG, 1D
     Route: 042
     Dates: start: 20200708, end: 20200723
  40. IMODIUM [Suspect]
     Active Substance: LOPERAMIDE HYDROCHLORIDE
     Indication: DIARRHOEA
     Dosage: 4 MILLIGRAM, QD (4 MG, SINGLE)
     Route: 048
     Dates: start: 20200804, end: 20200804
  41. LOVENOX [Suspect]
     Active Substance: ENOXAPARIN SODIUM
     Dosage: UNK
  42. OXAZEPAM. [Suspect]
     Active Substance: OXAZEPAM
     Dosage: 10 MILLIGRAM, QD
     Route: 048
     Dates: start: 20200802, end: 20200804
  43. GLUCONATE DE CALCIUM [Suspect]
     Active Substance: CALCIUM GLUCONATE
     Indication: PRODUCT USED FOR UNKNOWN INDICATION
     Dosage: UNK
     Route: 065
  44. DIFFU-K [Suspect]
     Active Substance: POTASSIUM CHLORIDE
     Indication: PRODUCT USED FOR UNKNOWN INDICATION
     Dosage: UNK
     Route: 065
  45. URAPIDIL [Suspect]
     Active Substance: URAPIDIL
     Dosage: UNK
  46. LANSOPRAZOLE. [Suspect]
     Active Substance: LANSOPRAZOLE
     Dosage: 3 MILLIGRAM, QD
     Route: 048
     Dates: start: 20200210, end: 20200805
  47. HUMALOG [Suspect]
     Active Substance: INSULIN LISPRO
     Indication: PRODUCT USED FOR UNKNOWN INDICATION
     Dosage: 1 IU, CO
     Route: 042
     Dates: start: 20200709, end: 20200730
  48. OXAZEPAM. [Suspect]
     Active Substance: OXAZEPAM
     Dosage: 10 UNK
     Route: 048
  49. LORAZEPAM. [Suspect]
     Active Substance: LORAZEPAM
     Dosage: 10 MILLIGRAM
     Route: 048
  50. REMIFENTANIL [Suspect]
     Active Substance: REMIFENTANIL
     Dosage: UNK
     Route: 042
     Dates: start: 20200720, end: 20200730
  51. TEMESTA                            /00273201/ [Suspect]
     Active Substance: LORAZEPAM
     Indication: ANXIOLYTIC THERAPY
     Dosage: 10 MILLIGRAM, QD 2.5 MG, QID
     Route: 048
     Dates: start: 20200726, end: 20200727
  52. MACROGOL [Suspect]
     Active Substance: POLYETHYLENE GLYCOLS
     Dosage: UNK UNK, QD
     Route: 048
     Dates: start: 20200713, end: 20200715
  53. PROPOFOL. [Suspect]
     Active Substance: PROPOFOL
     Indication: SEDATION
     Dosage: 150 MG/HR, CO
     Route: 042
     Dates: start: 20200709, end: 20200720
  54. MORPHINE [Suspect]
     Active Substance: MORPHINE
     Indication: PRODUCT USED FOR UNKNOWN INDICATION
     Dosage: UNK
     Route: 065
  55. LOPERAMIDE [Suspect]
     Active Substance: LOPERAMIDE
     Indication: DIARRHOEA
     Dosage: 4 MILLIGRAM, SINGLE
     Route: 048
     Dates: start: 20200804, end: 20200804
  56. IPRATROPIUM [Suspect]
     Active Substance: IPRATROPIUM
     Dosage: UNK
  57. CEFOTAXIME [Suspect]
     Active Substance: CEFOTAXIME SODIUM
     Indication: PNEUMONIA
     Dosage: 6 GRAM, QD (2 G, TID)
     Route: 042
     Dates: start: 20200708, end: 20200715
  58. CEFOTAXIME [Suspect]
     Active Substance: CEFOTAXIME SODIUM
     Dosage: 42 GRAM
     Route: 042
  59. CEFOTAXIME [Suspect]
     Active Substance: CEFOTAXIME SODIUM
     Dosage: 6 GRAM
     Route: 042
  60. METHYLPREDNISOLONE. [Suspect]
     Active Substance: METHYLPREDNISOLONE
     Dosage: 1200 MILLIGRAM
     Route: 042
     Dates: start: 20200708, end: 20200723
  61. LANSOPRAZOLE. [Suspect]
     Active Substance: LANSOPRAZOLE
     Indication: GASTROINTESTINAL DISORDER PROPHYLAXIS
     Dosage: 30 MILLIGRAM, QD (3 MG, SINGLE)
     Route: 048
     Dates: start: 20200710, end: 20200805
  62. SERESTA [Suspect]
     Active Substance: OXAZEPAM
     Indication: ANXIOLYTIC THERAPY
     Dosage: 10 MG, 1D
     Route: 048
     Dates: start: 20200802, end: 20200804
  63. FRUSEMIDE                          /00032601/ [Suspect]
     Active Substance: FUROSEMIDE
     Indication: PRODUCT USED FOR UNKNOWN INDICATION
     Dosage: UNK
     Route: 065
  64. LORAZEPAM. [Suspect]
     Active Substance: LORAZEPAM
     Indication: ANXIOLYTIC THERAPY
     Dosage: 2.5 MILLIGRAM
     Route: 048
     Dates: start: 20200726, end: 20200727
  65. FUROSEMIDE. [Suspect]
     Active Substance: FUROSEMIDE
     Indication: PRODUCT USED FOR UNKNOWN INDICATION
     Dosage: UNK
     Route: 065
  66. SUFENTANIL [Suspect]
     Active Substance: SUFENTANIL
     Indication: SEDATION
     Dosage: UNK
  67. URAPIDIL [Suspect]
     Active Substance: URAPIDIL
     Indication: HYPERTENSION
     Dosage: 5 MG/HR, CO
     Route: 042
     Dates: start: 20200709, end: 20200709
  68. URAPIDIL [Suspect]
     Active Substance: URAPIDIL
     Dosage: 5 MILLIGRAM
     Route: 042
     Dates: start: 20200709, end: 20200709
  69. PARACETAMOL [Suspect]
     Active Substance: ACETAMINOPHEN
     Indication: PYREXIA
     Dosage: 1 G, PRN
     Route: 042
     Dates: start: 20200719, end: 20200730
  70. PARACETAMOL [Suspect]
     Active Substance: ACETAMINOPHEN
     Dosage: UNK
  71. PROPOFOL. [Suspect]
     Active Substance: PROPOFOL
     Dosage: 150 MILLIGRAM
     Route: 042
     Dates: start: 20200709, end: 20200720
  72. CATAPRESSAN                        /00171101/ [Suspect]
     Active Substance: CLONIDINE
     Indication: SEDATION
  73. PIPERACILLIN/TAZOBACTAM [Suspect]
     Active Substance: PIPERACILLIN SODIUM\TAZOBACTAM SODIUM
     Indication: PNEUMONIA
     Dosage: 12 GRAM, QD (4 G, TID)
     Route: 042
     Dates: start: 20200723, end: 20200730
  74. PIPERACILLIN/TAZOBACTAM [Suspect]
     Active Substance: PIPERACILLIN SODIUM\TAZOBACTAM SODIUM
     Dosage: 84 GRAM
     Route: 042
  75. SERTRALINE [Suspect]
     Active Substance: SERTRALINE HYDROCHLORIDE
     Dosage: 746.35 MILLIGRAM
     Route: 048
  76. METHYLPREDNISOLONE. [Suspect]
     Active Substance: METHYLPREDNISOLONE
     Dosage: 1200 MILLIGRAM
     Route: 042
  77. REMIFENTANIL [Suspect]
     Active Substance: REMIFENTANIL
     Indication: SEDATION
     Dosage: 0.1 MCG/KG/MIN, CO
     Route: 042
     Dates: start: 20200720, end: 20200730
  78. PHOSPHONEUROS [Suspect]
     Active Substance: CALCIUM PHOSPHATE, DIBASIC, ANHYDROUS\MAGNESIUM GLYCEROPHOSPHATE\PHOSPHORIC ACID\SODIUM PHOSPHATE, DIBASIC
     Indication: PNEUMONIA
     Dosage: 6 GRAM, QD
     Route: 042
     Dates: start: 20200708, end: 20200715
  79. DUPHALAC [Suspect]
     Active Substance: LACTULOSE
     Indication: CONSTIPATION
     Dosage: 40 GRAM, QD (20 G, BID)
     Route: 048
     Dates: start: 20200713, end: 20200715
  80. THIAMINE. [Suspect]
     Active Substance: THIAMINE
     Indication: PRODUCT USED FOR UNKNOWN INDICATION
     Dosage: UNK
     Route: 065
  81. CATAPRESSAN                        /00171101/ [Suspect]
     Active Substance: CLONIDINE
     Indication: HYPERTENSION
     Dosage: UNK
     Route: 065
     Dates: start: 20200717, end: 20200717
  82. IPRATROPIUM [Suspect]
     Active Substance: IPRATROPIUM
     Indication: INHALATION THERAPY
     Dosage: 6 MILLIGRAM
     Route: 055
  83. IPRATROPIUM [Suspect]
     Active Substance: IPRATROPIUM
     Dosage: 1.5 MILLIGRAM
     Route: 055

REACTIONS (1)
  - Toxic epidermal necrolysis [Fatal]

NARRATIVE: CASE EVENT DATE: 20200809
